FAERS Safety Report 6860675-4 (Version None)
Quarter: 2010Q3

REPORT INFORMATION
  Report Type: 
  Country: None (occurrence: None)
  Receive Date: 20100719
  Receipt Date: 20100719
  Transmission Date: 20110219
  Serious: No
  Sender: FDA-Public Use
  Company Number: None

PATIENT
  Age: 61 Year
  Sex: Female
  Weight: 43.0917 kg

DRUGS (1)
  1. BONIVA [Suspect]
     Indication: OSTEOPOROSIS
     Dosage: 150 MG TAB MONTHLY PO
     Route: 048
     Dates: start: 20090209, end: 20100610

REACTIONS (3)
  - DYSPHAGIA [None]
  - OESOPHAGEAL ULCER [None]
  - OROPHARYNGEAL PAIN [None]
